FAERS Safety Report 8938576 (Version 1)
Quarter: 2012Q4

REPORT INFORMATION
  Report Type: 
  Country: US (occurrence: US)
  Receive Date: 20121203
  Receipt Date: 20121203
  Transmission Date: 20130627
  Serious: Yes (Other)
  Sender: FDA-Public Use
  Company Number: PHEH2012US023433

PATIENT
  Sex: Male

DRUGS (11)
  1. DIOVAN [Suspect]
  2. ACTOS [Concomitant]
  3. CRESTOR [Concomitant]
  4. CLONIDINE [Concomitant]
  5. JANUVIA [Concomitant]
  6. NEXIUM [Concomitant]
  7. METFORMIN [Concomitant]
  8. CARVEDILOL [Concomitant]
  9. TRAMADOL [Concomitant]
  10. ALEVE [Concomitant]
  11. COCONUT OIL [Concomitant]

REACTIONS (3)
  - Fall [Unknown]
  - Joint dislocation [Unknown]
  - Hypotension [Unknown]
